FAERS Safety Report 6868623-8 (Version None)
Quarter: 2010Q3

REPORT INFORMATION
  Report Type: 
  Country: None (occurrence: None)
  Receive Date: 20100722
  Receipt Date: 20080626
  Transmission Date: 20110219
  Serious: Yes (Hospitalization, Other)
  Sender: FDA-Public Use
  Company Number: US-PFIZER INC-2008046542

PATIENT
  Sex: Male
  Weight: 69.9 kg

DRUGS (11)
  1. CHANTIX [Suspect]
     Indication: TOBACCO ABUSE
     Route: 048
     Dates: start: 20071120, end: 20080122
  2. NAMENDA [Concomitant]
  3. RISPERDAL [Concomitant]
  4. ANTABUSE [Concomitant]
  5. PAXIL [Concomitant]
  6. ZANTAC [Concomitant]
  7. MAGNESIUM [Concomitant]
  8. RELAFEN [Concomitant]
  9. TAMSULOSIN HYDROCHLORIDE [Concomitant]
  10. NORCO [Concomitant]
  11. NEXIUM [Concomitant]

REACTIONS (3)
  - CONVULSION [None]
  - GASTROINTESTINAL HAEMORRHAGE [None]
  - HYPOTENSION [None]
